FAERS Safety Report 25863416 (Version 1)
Quarter: 2025Q3

REPORT INFORMATION
  Report Type: Other
  Country: GB (occurrence: GB)
  Receive Date: 20250930
  Receipt Date: 20250930
  Transmission Date: 20251020
  Serious: Yes (Other)
  Sender: STRIDES
  Company Number: None

PATIENT
  Age: 49 Year
  Sex: Female
  Weight: 81 kg

DRUGS (6)
  1. GABAPENTIN [Suspect]
     Active Substance: GABAPENTIN
     Indication: Back pain
     Route: 065
     Dates: start: 20250514, end: 20250529
  2. AMITRIPTYLINE [Concomitant]
     Active Substance: AMITRIPTYLINE
     Indication: Product used for unknown indication
     Route: 065
     Dates: start: 20250430, end: 20250514
  3. GABAPENTIN [Concomitant]
     Active Substance: GABAPENTIN
     Indication: Back pain
     Route: 065
     Dates: start: 20250514, end: 20250529
  4. PREDNISOLONE [Concomitant]
     Active Substance: PREDNISOLONE
     Indication: Product used for unknown indication
     Route: 065
     Dates: start: 20250529
  5. LANSOPRAZOLE [Concomitant]
     Active Substance: LANSOPRAZOLE
     Indication: Product used for unknown indication
     Route: 065
     Dates: start: 20250529
  6. MENTHOL [Concomitant]
     Active Substance: MENTHOL
     Indication: Product used for unknown indication
     Route: 065
     Dates: start: 20250529

REACTIONS (1)
  - Photosensitivity reaction [Unknown]
